FAERS Safety Report 4737079-3 (Version None)
Quarter: 2005Q3

REPORT INFORMATION
  Report Type: 
  Country: None (occurrence: None)
  Receive Date: 20050728
  Receipt Date: 20050623
  Transmission Date: 20060218
  Serious: Yes (Other)
  Sender: FDA-Public Use
  Company Number: 200515295US

PATIENT
  Age: 68 Year
  Sex: Male

DRUGS (9)
  1. KETEK [Suspect]
     Indication: BRONCHITIS
     Dosage: 800 MG QD  PO
     Route: 048
     Dates: start: 20050608, end: 20050612
  2. COZAAR [Concomitant]
  3. NEURONTIN [Concomitant]
  4. AMITRIPTYLINE [Concomitant]
  5. BENAZEPRIL HYDROCHLOROTHIAZIDE [Concomitant]
  6. PANTOPRAZOLE SODIUM [Concomitant]
  7. INHALERS (NOS) [Concomitant]
  8. LANTUS [Concomitant]
  9. NOVOLOG [Concomitant]

REACTIONS (2)
  - ANGIONEUROTIC OEDEMA [None]
  - SWELLING FACE [None]
